FAERS Safety Report 8003039-2 (Version None)
Quarter: 2011Q4

REPORT INFORMATION
  Report Type: 
  Country: None (occurrence: None)
  Receive Date: 20111222
  Receipt Date: 20111014
  Transmission Date: 20120403
  Serious: No
  Sender: FDA-Public Use
  Company Number: US-GLAXOSMITHKLINE-A0950048A

PATIENT
  Sex: Male

DRUGS (2)
  1. AVODART [Suspect]
     Indication: BENIGN PROSTATIC HYPERPLASIA
  2. NO CONCURRENT MEDICATION [Concomitant]

REACTIONS (4)
  - MICTURITION URGENCY [None]
  - POLLAKIURIA [None]
  - NOCTURIA [None]
  - URINARY TRACT DISORDER [None]
